FAERS Safety Report 6730338-4 (Version None)
Quarter: 2010Q2

REPORT INFORMATION
  Report Type: 
  Country: None (occurrence: None)
  Receive Date: 20100518
  Receipt Date: 20100511
  Transmission Date: 20101027
  Serious: Yes (Death)
  Sender: FDA-Public Use
  Company Number: A0774240A

PATIENT
  Age: 76 Year
  Sex: Male
  Weight: 75 kg

DRUGS (3)
  1. AVANDIA [Suspect]
     Dosage: 4MG TWICE PER DAY
     Route: 048
     Dates: start: 20010101
  2. LIPITOR [Concomitant]
     Dates: start: 20000101
  3. ZOCOR [Concomitant]
     Dates: start: 20000101

REACTIONS (3)
  - CARDIAC ARREST [None]
  - CEREBROVASCULAR ACCIDENT [None]
  - MYOCARDIAL INFARCTION [None]
